FAERS Safety Report 22097922 (Version 1)
Quarter: 2023Q1

REPORT INFORMATION
  Report Type: Report from Study
  Country: US (occurrence: US)
  Receive Date: 20230315
  Receipt Date: 20230315
  Transmission Date: 20230417
  Serious: Yes (Hospitalization)
  Sender: FDA-Public Use
  Company Number: US-ARGENX-2022-ARGX-US001550

PATIENT

DRUGS (1)
  1. VYVGART [Suspect]
     Active Substance: EFGARTIGIMOD ALFA-FCAB
     Indication: Product used for unknown indication

REACTIONS (7)
  - Spinal nerve stimulator implantation [Not Recovered/Not Resolved]
  - Rash [Recovering/Resolving]
  - Alopecia [Unknown]
  - Vaginal infection [Unknown]
  - Clostridium difficile infection [Unknown]
  - Postoperative wound infection [Not Recovered/Not Resolved]
  - Urinary tract infection [Unknown]

NARRATIVE: CASE EVENT DATE: 20230308
